FAERS Safety Report 17020724 (Version 1)
Quarter: 2019Q4

REPORT INFORMATION
  Report Type: Spontaneous
  Country: GB (occurrence: GB)
  Receive Date: 20191112
  Receipt Date: 20191112
  Transmission Date: 20200122
  Serious: Yes (Other)
  Sender: FDA-Public Use
  Company Number: GB-PFIZER INC-2017481076

PATIENT
  Age: 29 Year
  Sex: Male

DRUGS (5)
  1. SERTRALINE HCL [Suspect]
     Active Substance: SERTRALINE HYDROCHLORIDE
     Dosage: UNK
     Route: 065
  2. SERTRALINE HCL [Suspect]
     Active Substance: SERTRALINE HYDROCHLORIDE
     Dosage: UNK
     Dates: start: 201710
  3. CLOZARIL [Suspect]
     Active Substance: CLOZAPINE
     Dosage: 50 MG, 1X/DAY
     Route: 048
     Dates: start: 201710, end: 20171031
  4. CLOZARIL [Suspect]
     Active Substance: CLOZAPINE
     Indication: SCHIZOPHRENIA
     Dosage: 25 MG, 3X/DAY
     Route: 048
     Dates: start: 201710, end: 201710
  5. CLOZARIL [Suspect]
     Active Substance: CLOZAPINE
     Dosage: UNK
     Route: 048
     Dates: start: 20171002

REACTIONS (4)
  - Myoclonus [Unknown]
  - Tachycardia [Unknown]
  - Product dose omission [Recovered/Resolved]
  - Schizophrenia [Unknown]

NARRATIVE: CASE EVENT DATE: 2017
